FAERS Safety Report 8912423 (Version 1)
Quarter: 2012Q4

REPORT INFORMATION
  Report Type: 
  Country: CH (occurrence: CH)
  Receive Date: 20121116
  Receipt Date: 20121116
  Transmission Date: 20130627
  Serious: Yes (Hospitalization)
  Sender: FDA-Public Use
  Company Number: CH-SANOFI-AVENTIS-2012SA081943

PATIENT
  Age: 70 Year
  Sex: Male

DRUGS (3)
  1. MULTAQ [Suspect]
     Indication: ATRIAL FIBRILLATION
     Route: 048
     Dates: start: 20121017, end: 20121018
  2. MULTAQ [Interacting]
     Indication: ATRIAL FLUTTER
     Route: 048
     Dates: start: 20121017, end: 20121018
  3. TAMSULOSIN HYDROCHLORIDE [Interacting]
     Indication: DRUG USE FOR UNKNOWN INDICATION
     Dosage: start date: more than a year
     Route: 048

REACTIONS (2)
  - Syncope [Recovered/Resolved]
  - Drug interaction [Unknown]
